FAERS Safety Report 4526441-X (Version None)
Quarter: 2004Q4

REPORT INFORMATION
  Report Type: 
  Country: None (occurrence: None)
  Receive Date: 20041214
  Receipt Date: 20041206
  Transmission Date: 20050328
  Serious: Yes (Death)
  Sender: FDA-Public Use
  Company Number: BE-JNJFOC-20041103326

PATIENT
  Age: 79 Year
  Sex: Female

DRUGS (18)
  1. PREPULSID [Suspect]
     Route: 049
  2. ACENTERIN [Concomitant]
  3. ALDACTAZINE [Concomitant]
     Route: 049
  4. ALDACTAZINE [Concomitant]
     Dosage: 1/2 TABLET/DAY
     Route: 049
  5. AMANTAN [Concomitant]
  6. CORDARONE [Concomitant]
     Dosage: 4X1/2 WEEKLY
  7. CORUNO [Concomitant]
  8. DISTRANEURIN [Concomitant]
     Dosage: 1 DOSE NOCTURNAL
  9. FUROSEMIDE [Concomitant]
  10. ELDEPRYL [Concomitant]
  11. LORAMET [Concomitant]
     Dosage: 2 MG NOCTURNAL
  12. ACETAMINOPHEN [Concomitant]
  13. SINEMET CONTROL [Concomitant]
  14. SINEMET CONTROL [Concomitant]
  15. XANAX [Concomitant]
  16. ZANIDIP [Concomitant]
  17. ZANTAC [Concomitant]
  18. LEPONEX [Concomitant]

REACTIONS (5)
  - DEHYDRATION [None]
  - DEMENTIA [None]
  - PARKINSON'S DISEASE [None]
  - RENAL FAILURE [None]
  - SOMNOLENCE [None]
